FAERS Safety Report 5409862-2 (Version None)
Quarter: 2007Q3

REPORT INFORMATION
  Report Type: 
  Country: None (occurrence: None)
  Receive Date: 20070807
  Receipt Date: 20070726
  Transmission Date: 20080115
  Serious: Yes (Hospitalization)
  Sender: FDA-Public Use
  Company Number: 02100-JPN-07-0402

PATIENT
  Age: 78 Year
  Sex: Female

DRUGS (10)
  1. ONE OF CILOSTAZOL [Suspect]
     Indication: CEREBRAL INFARCTION
     Dosage: ONE OF 200 MG OR 75 MG, ORAL
     Route: 048
     Dates: start: 20061102, end: 20061124
  2. CLOPIDOGREL [Suspect]
     Dates: start: 20061126, end: 20070529
  3. ASPIRIN [Concomitant]
  4. ATORVASTATIN CALCIUM [Concomitant]
  5. CILNIDIPINE [Concomitant]
  6. CILOSTAZOL [Concomitant]
  7. IRBESARTAN AND HYDROCHLOROTHIAZIDE [Concomitant]
  8. ISONIAZID [Concomitant]
  9. RIFAMPICIN [Concomitant]
  10. PYRIDOXINE HYDROCHLORIDE [Concomitant]

REACTIONS (1)
  - HERPES ZOSTER [None]
